FAERS Safety Report 8389256-0 (Version None)
Quarter: 2012Q2

REPORT INFORMATION
  Report Type: 
  Country: None (occurrence: None)
  Receive Date: 20120528
  Receipt Date: 20120525
  Transmission Date: 20120825
  Serious: Yes (Death, Hospitalization, Other)
  Sender: FDA-Public Use
  Company Number: PHHY2012CA028667

PATIENT
  Sex: Female

DRUGS (4)
  1. SANDOSTATIN LAR [Suspect]
     Dosage: 20 MG, ONCE A MONTH
     Route: 030
     Dates: end: 20120425
  2. SANDOSTATIN LAR [Suspect]
     Dosage: 20 MG, EVERY 4 WEEKS
     Route: 030
  3. CHEMOTHERAPEUTICS [Concomitant]
  4. SANDOSTATIN LAR [Suspect]
     Indication: SMALL INTESTINAL OBSTRUCTION
     Dosage: 20 MG, QMO
     Route: 030
     Dates: start: 20120329

REACTIONS (7)
  - ABDOMINAL DISTENSION [None]
  - ASTHENIA [None]
  - NAUSEA [None]
  - HYPOPHAGIA [None]
  - DEATH [None]
  - VOMITING [None]
  - HEADACHE [None]
